FAERS Safety Report 6890164-2 (Version None)
Quarter: 2010Q3

REPORT INFORMATION
  Report Type: 
  Country: None (occurrence: None)
  Receive Date: 20100730
  Receipt Date: 20080811
  Transmission Date: 20110219
  Serious: No
  Sender: FDA-Public Use
  Company Number: US-PFIZER INC-2008067017

PATIENT
  Sex: Male

DRUGS (3)
  1. LIPITOR [Suspect]
  2. GRAPEFRUIT JUICE [Interacting]
  3. KETEK [Concomitant]

REACTIONS (3)
  - BLOOD CHOLESTEROL INCREASED [None]
  - DRUG INTERACTION [None]
  - TOOTH FRACTURE [None]
